FAERS Safety Report 10087092 (Version 1)
Quarter: 2014Q2

REPORT INFORMATION
  Report Type: Spontaneous
  Country: US (occurrence: US)
  Receive Date: 20140418
  Receipt Date: 20140418
  Transmission Date: 20141212
  Serious: No
  Sender: FDA-Public Use
  Company Number: US-UPSHER-SMITH LABORATORIES, INC.-13003736

PATIENT
  Age: 83 Year
  Sex: Male

DRUGS (11)
  1. PREVALITE [Suspect]
     Indication: DIARRHOEA
     Dosage: 4 G, QD
     Route: 048
     Dates: start: 201310, end: 201310
  2. PREVALITE [Suspect]
     Dosage: 4 G, BID
     Route: 048
     Dates: start: 201310
  3. XARELTO [Concomitant]
     Dosage: UNK
  4. AMLODIPINE [Concomitant]
     Dosage: UNK
  5. ACIPHEX [Concomitant]
     Dosage: UNK
  6. CARVEDILOL [Concomitant]
     Dosage: UNK
  7. PREDNISONE [Concomitant]
     Indication: RHEUMATOID ARTHRITIS
     Dosage: UNK
  8. LEFLUNOMIDE [Concomitant]
     Dosage: UNK
  9. RAPAFLO [Concomitant]
     Indication: PROSTATOMEGALY
     Dosage: UNK
  10. FOLIC ACID [Concomitant]
     Dosage: UNK
  11. AVODART [Concomitant]
     Dosage: UNK

REACTIONS (2)
  - Peripheral swelling [Not Recovered/Not Resolved]
  - Drug ineffective for unapproved indication [Recovering/Resolving]
